FAERS Safety Report 17462419 (Version 2)
Quarter: 2020Q1

REPORT INFORMATION
  Report Type: Report from Study
  Country: US (occurrence: US)
  Receive Date: 20200226
  Receipt Date: 20200302
  Transmission Date: 20200409
  Serious: Yes (Hospitalization, Other)
  Sender: FDA-Public Use
  Company Number: US-ROCHE-2539600

PATIENT
  Sex: Female

DRUGS (2)
  1. OCREVUS [Suspect]
     Active Substance: OCRELIZUMAB
     Indication: MULTIPLE SCLEROSIS
     Dosage: 600MG ONCE EVERY 6 MONTHS
     Route: 065
     Dates: start: 20180423
  2. SOLU-MEDROL [Concomitant]
     Active Substance: METHYLPREDNISOLONE SODIUM SUCCINATE

REACTIONS (6)
  - Anaemia [Unknown]
  - Myocardial infarction [Unknown]
  - Weight decreased [Unknown]
  - Night sweats [Unknown]
  - Malaise [Not Recovered/Not Resolved]
  - Multiple sclerosis [Unknown]
